FAERS Safety Report 4500090-1 (Version None)
Quarter: 2004Q4

REPORT INFORMATION
  Report Type: 
  Country: None (occurrence: None)
  Receive Date: 20041112
  Receipt Date: 20041008
  Transmission Date: 20050328
  Serious: Yes (Other)
  Sender: FDA-Public Use
  Company Number: US-GLAXOSMITHKLINE-A0529218A

PATIENT
  Age: 46 Year
  Sex: Female

DRUGS (5)
  1. LAMICTAL [Suspect]
     Indication: BIPOLAR I DISORDER
     Route: 048
     Dates: start: 20040517
  2. TRILEPTAL [Concomitant]
     Indication: BIPOLAR I DISORDER
     Dosage: 75MG PER DAY
     Dates: start: 20030821, end: 20040601
  3. MINOCYCLINE HCL [Concomitant]
     Indication: ACNE
     Route: 048
  4. PREMARIN [Concomitant]
     Route: 048
     Dates: start: 19970501
  5. ST JOHNS WORT [Concomitant]
     Indication: DEPRESSION
     Route: 048
     Dates: start: 20030701

REACTIONS (3)
  - HALLUCINATION, VISUAL [None]
  - HYPNOPOMPIC HALLUCINATION [None]
  - SLEEP PARALYSIS [None]
